FAERS Safety Report 8274566-8 (Version None)
Quarter: 2012Q2

REPORT INFORMATION
  Report Type: 
  Country: None (occurrence: None)
  Receive Date: 20120411
  Receipt Date: 20120403
  Transmission Date: 20120825
  Serious: Yes (Hospitalization)
  Sender: FDA-Public Use
  Company Number: US-BAYER-2012-006568

PATIENT
  Age: 21 Year
  Sex: Female
  Weight: 98.866 kg

DRUGS (6)
  1. YAZ [Suspect]
     Indication: CONTRACEPTION
     Dates: start: 20070502, end: 20080303
  2. IMITREX [Concomitant]
     Indication: HEADACHE
  3. MAXALT [Concomitant]
  4. IBUPROFEN [Concomitant]
  5. YAZ [Suspect]
     Dosage: UNK
     Route: 048
     Dates: start: 20090622, end: 20100801
  6. NAPROSYN [Concomitant]
     Indication: HEADACHE

REACTIONS (2)
  - CEREBROVASCULAR ACCIDENT [None]
  - INJURY [None]
